FAERS Safety Report 4884824-2 (Version None)
Quarter: 2005Q4

REPORT INFORMATION
  Report Type: 
  Country: None (occurrence: None)
  Receive Date: 20051201
  Receipt Date: 20050920
  Transmission Date: 20060501
  Serious: No
  Sender: FDA-Public Use
  Company Number: 2005PV002282

PATIENT
  Age: 70 Year
  Sex: Male
  Weight: 93.441 kg

DRUGS (18)
  1. BYETTA [Suspect]
     Indication: DIABETES MELLITUS NON-INSULIN-DEPENDENT
     Dosage: 5 MCG;BID;SC
     Route: 058
     Dates: start: 20050906
  2. PLAVIX [Concomitant]
  3. METFORMIN HCL [Concomitant]
  4. ACTOS [Concomitant]
  5. ALTACE [Concomitant]
  6. TOPROL-XL [Concomitant]
  7. ZETIA [Concomitant]
  8. ZOLOFT [Concomitant]
  9. VITAMIN D [Concomitant]
  10. FOLIC ACID [Concomitant]
  11. CENTRUM [Concomitant]
  12. ASCORBIC ACID [Concomitant]
  13. FERRIC GLUCONATE [Concomitant]
  14. HOMOCYSTEINE DEFENSE [Concomitant]
  15. VICODIN [Concomitant]
  16. MAGNESIUM [Concomitant]
  17. ALPHA LIPOIC ACID [Concomitant]
  18. GANTRISIN [Concomitant]

REACTIONS (4)
  - DECREASED APPETITE [None]
  - INJECTION SITE BRUISING [None]
  - INJECTION SITE PAIN [None]
  - WEIGHT DECREASED [None]
